FAERS Safety Report 14738634 (Version 1)
Quarter: 2018Q2

REPORT INFORMATION
  Report Type: Spontaneous
  Country: US (occurrence: US)
  Receive Date: 20180409
  Receipt Date: 20180409
  Transmission Date: 20180711
  Serious: Yes (Hospitalization, Other)
  Sender: FDA-Public Use
  Company Number: US-PFIZER INC-2018137439

PATIENT
  Age: 56 Year
  Sex: Female
  Weight: 89.36 kg

DRUGS (5)
  1. ALPRAZOLAM. [Concomitant]
     Active Substance: ALPRAZOLAM
     Indication: CONFUSIONAL STATE
  2. CHANTIX [Suspect]
     Active Substance: VARENICLINE TARTRATE
     Indication: SMOKING CESSATION THERAPY
     Dosage: UNK
  3. ALPRAZOLAM. [Concomitant]
     Active Substance: ALPRAZOLAM
     Indication: FEAR
     Dosage: 1MG 3 TIMES DAILY
  4. ALPRAZOLAM. [Concomitant]
     Active Substance: ALPRAZOLAM
     Indication: NERVOUSNESS
  5. RANITIDINE. [Concomitant]
     Active Substance: RANITIDINE
     Indication: ABDOMINAL DISCOMFORT
     Dosage: 300 MG, TWICE DAILY

REACTIONS (8)
  - Nervousness [Unknown]
  - Confusional state [Unknown]
  - Coma [Recovered/Resolved]
  - Fall [Unknown]
  - Gastrointestinal motility disorder [Unknown]
  - Cerebrovascular accident [Recovering/Resolving]
  - Femur fracture [Unknown]
  - Fear [Unknown]
